FAERS Safety Report 10550898 (Version 1)
Quarter: 2014Q4

REPORT INFORMATION
  Report Type: Spontaneous
  Country: RS (occurrence: None)
  Receive Date: 20141027
  Receipt Date: 20141027
  Transmission Date: 20150529
  Serious: Yes (Other)
  Sender: FDA-Public Use
  Company Number: RS-ZYDUS-005290

PATIENT
  Age: 60 Year
  Sex: Female

DRUGS (6)
  1. DOXORUBICIN (DOXORUBICIN) [Concomitant]
     Active Substance: DOXORUBICIN
     Indication: BREAST CANCER STAGE III
     Dosage: 3 WEEKS
  2. TRASTUZUMAB (TRASTUZUMAB) [Suspect]
     Active Substance: TRASTUZUMAB
     Dosage: 3 WEEKS
  3. INTERFERON ALFA-2A [Suspect]
     Active Substance: INTERFERON ALFA-2A
     Indication: ANTIVIRAL TREATMENT
     Dosage: 3-MIU, THREE TIMES/WEEK.
  4. DOCETAXEL (DOCETAXEL) [Concomitant]
     Active Substance: DOCETAXEL
     Dosage: 3 WEEKS
  5. CYCLOPHOSPHAMIDE (CYCLOPHOSPHAMIDE) [Suspect]
     Active Substance: CYCLOPHOSPHAMIDE
     Indication: BREAST CANCER STAGE III
     Dosage: 3 WEEKS
  6. RIBAVIRIN (RIBAVIRIN) [Suspect]
     Active Substance: RIBAVIRIN
     Indication: ANTIVIRAL TREATMENT

REACTIONS (3)
  - Hepatotoxicity [None]
  - Acute hepatitis C [None]
  - Neutropenia [None]
